FAERS Safety Report 18557733 (Version 1)
Quarter: 2020Q4

REPORT INFORMATION
  Report Type: Spontaneous
  Country: US (occurrence: US)
  Receive Date: 20201130
  Receipt Date: 20201130
  Transmission Date: 20210114
  Serious: No
  Sender: FDA-Public Use
  Company Number: US-009507513-2011USA012068

PATIENT
  Sex: Female

DRUGS (1)
  1. NEXPLANON [Suspect]
     Active Substance: ETONOGESTREL
     Dosage: 1 IMPLANT, ONCE EVERY THREE YEARS
     Route: 059
     Dates: start: 202011, end: 20201118

REACTIONS (2)
  - Implant site vesicles [Unknown]
  - Blister [Unknown]

NARRATIVE: CASE EVENT DATE: 202011
